FAERS Safety Report 9797157 (Version 2)
Quarter: 2015Q1

REPORT INFORMATION
  Report Type: Report from Study
  Country: JP (occurrence: JP)
  Receive Date: 20140106
  Receipt Date: 20150216
  Transmission Date: 20150721
  Serious: Yes (Death)
  Sender: FDA-Public Use
  Company Number: JP-ROCHE-1326576

PATIENT
  Age: 72 Year
  Sex: Male
  Weight: 52 kg

DRUGS (7)
  1. ANPLAG [Concomitant]
     Active Substance: SARPOGRELATE
     Route: 048
     Dates: end: 20120417
  2. PLETAAL [Concomitant]
     Active Substance: CILOSTAZOL
     Route: 048
     Dates: end: 20120417
  3. ASPENONE [Concomitant]
     Route: 048
     Dates: end: 20120417
  4. METHOXY POLYETHYLENE GLYCOL-EPOETIN BETA [Suspect]
     Active Substance: PEGZEREPOETIN ALFA
     Indication: NEPHROGENIC ANAEMIA
     Route: 042
     Dates: start: 20120326, end: 20120409
  5. METHYCOBAL [Concomitant]
     Active Substance: METHYLCOBALAMIN
     Route: 048
     Dates: end: 20120417
  6. TAKEPRON [Concomitant]
     Active Substance: LANSOPRAZOLE
     Route: 048
     Dates: end: 20120417
  7. PANTETHINE [Concomitant]
     Active Substance: PANTETHINE
     Route: 048
     Dates: end: 20120417

REACTIONS (1)
  - Circulatory collapse [Fatal]

NARRATIVE: CASE EVENT DATE: 20120417
